FAERS Safety Report 10551817 (Version 3)
Quarter: 2015Q1

REPORT INFORMATION
  Report Type: Spontaneous
  Country: BR (occurrence: BR)
  Receive Date: 20141029
  Receipt Date: 20150116
  Transmission Date: 20150720
  Serious: Yes (Hospitalization, Other)
  Sender: FDA-Public Use
  Company Number: BR-PFIZER INC-2014297777

PATIENT
  Age: 58 Year
  Sex: Female
  Weight: 59.5 kg

DRUGS (8)
  1. LYRICA [Suspect]
     Active Substance: PREGABALIN
     Indication: BURNING SENSATION
     Dosage: 75 MG (1 CAPSULE), 2X/DAY
     Route: 048
     Dates: start: 2012
  2. TORSILAX [Concomitant]
     Active Substance: ACETAMINOPHEN\CAFFEINE\CARISOPRODOL\DICLOFENAC
     Dosage: UNK, AS NEEDED
  3. CHAMPIX [Suspect]
     Active Substance: VARENICLINE TARTRATE
     Indication: SMOKING CESSATION THERAPY
     Dosage: UNK
     Route: 048
     Dates: start: 2010
  4. CHAMPIX [Suspect]
     Active Substance: VARENICLINE TARTRATE
     Dosage: 1 DF, 2X/DAY
     Route: 048
     Dates: end: 2012
  5. LYRICA [Suspect]
     Active Substance: PREGABALIN
     Indication: INTERVERTEBRAL DISC PROTRUSION
  6. ACTIVELLE [Concomitant]
     Active Substance: ESTRADIOL\NORETHINDRONE ACETATE
     Indication: PREMATURE MENOPAUSE
     Dosage: 1 DF, 1X/DAY
     Dates: start: 1999
  7. NATIFA PRO [Concomitant]
     Indication: PREMATURE MENOPAUSE
     Dosage: UNK
     Dates: start: 1999
  8. RIVOTRIL [Concomitant]
     Active Substance: CLONAZEPAM
     Dosage: 1 DF, 1X/DAY (WHEN NEEDED)
     Dates: start: 2010

REACTIONS (3)
  - Intervertebral disc protrusion [Not Recovered/Not Resolved]
  - Condition aggravated [Unknown]
  - Emphysema [Recovering/Resolving]

NARRATIVE: CASE EVENT DATE: 2014
